FAERS Safety Report 4419966-9 (Version None)
Quarter: 2004Q3

REPORT INFORMATION
  Report Type: 
  Country: None (occurrence: None)
  Receive Date: 20040809
  Receipt Date: 20040317
  Transmission Date: 20050211
  Serious: No
  Sender: FDA-Public Use
  Company Number: US-GLAXOSMITHKLINE-A0503210A

PATIENT
  Age: 53 Year
  Sex: Female

DRUGS (4)
  1. PAXIL [Suspect]
     Dosage: 20MG PER DAY
     Route: 048
     Dates: start: 20000101
  2. PAXIL CR [Suspect]
     Dosage: 37.5MG PER DAY
     Route: 048
     Dates: start: 20030108, end: 20030101
  3. XANAX [Concomitant]
  4. LEXAPRO [Concomitant]

REACTIONS (10)
  - ANXIETY [None]
  - CONFUSIONAL STATE [None]
  - DEPRESSION [None]
  - DISSOCIATION [None]
  - DRUG INEFFECTIVE [None]
  - EMOTIONAL DISTRESS [None]
  - HEART RATE INCREASED [None]
  - LIBIDO DECREASED [None]
  - PRURITUS [None]
  - RASH [None]
